FAERS Safety Report 4359764-8 (Version None)
Quarter: 2004Q2

REPORT INFORMATION
  Report Type: 
  Country: None (occurrence: None)
  Receive Date: 20040518
  Receipt Date: 20031103
  Transmission Date: 20050107
  Serious: Yes (Hospitalization, Other)
  Sender: FDA-Public Use
  Company Number: PHEH2003US10198

PATIENT
  Age: 68 Year
  Sex: Male

DRUGS (24)
  1. AREDIA [Suspect]
     Indication: MULTIPLE MYELOMA
     Dosage: 90 MG, QMO
     Dates: start: 19980101, end: 20010101
  2. ZOMETA [Suspect]
     Indication: MULTIPLE MYELOMA
     Dosage: 4 MG, QMO
     Dates: start: 20010101
  3. POTASSIUM [Concomitant]
     Indication: ELECTROLYTE IMBALANCE
     Dosage: 50 MG, UNK
  4. OXYCONTIN [Concomitant]
     Indication: PAIN
     Dosage: UNK, PRN
  5. MULTIVITAMIN [Concomitant]
  6. PERI-COLACE [Concomitant]
  7. SENNA [Concomitant]
  8. LORAZEPAM [Concomitant]
     Indication: ANXIETY
     Dosage: 5 MG, PRN
     Dates: start: 20000101
  9. PREVACID [Concomitant]
     Indication: GASTRITIS
     Dosage: 30 MG, BID
     Dates: start: 20000101
  10. NEURONTIN [Concomitant]
     Indication: NEUROPATHY
     Dosage: 800 MG, UNK
  11. NEURONTIN [Concomitant]
     Dosage: 600 MG, BID
     Dates: start: 20010101
  12. AUGMENTIN [Concomitant]
     Dosage: UNK, BID
  13. CLINDAMYCIN HCL [Concomitant]
  14. THALIDOMIDE [Concomitant]
  15. VERAPAMIL [Concomitant]
  16. CHLORTHALIDONE [Concomitant]
     Dosage: 25 MG, QD
  17. LACTULOSE [Concomitant]
     Dosage: 10 G, QD
  18. XANAX [Concomitant]
  19. FELODIPINE [Concomitant]
  20. DEXAMETHASONE [Concomitant]
     Indication: MULTIPLE MYELOMA
     Dosage: 40 UNK, UNK
  21. DIOVAN [Concomitant]
     Dosage: 100 MG, UNK
  22. VIOXX [Concomitant]
     Indication: PAIN
     Dosage: 25 MG, UNK
     Dates: start: 20010101
  23. OXYCODONE [Concomitant]
     Indication: PAIN
     Dosage: 15 MBQ, UNK
     Dates: start: 20010101
  24. INVESTIGATIONAL DRUG [Concomitant]
     Dosage: UNK, UNK
     Dates: start: 20030501

REACTIONS (19)
  - ABSCESS ORAL [None]
  - CELLULITIS [None]
  - EXOSTOSIS [None]
  - OPEN WOUND [None]
  - OSTEOMYELITIS [None]
  - OSTEONECROSIS [None]
  - OSTEOSCLEROSIS [None]
  - PAIN IN JAW [None]
  - PRIMARY SEQUESTRUM [None]
  - PURULENT DISCHARGE [None]
  - SCAR EXCISION [None]
  - SEQUESTRECTOMY [None]
  - SWELLING [None]
  - TOOTH ABSCESS [None]
  - TOOTH EXTRACTION [None]
  - TOOTH INFECTION [None]
  - TOOTHACHE [None]
  - WOUND DEBRIDEMENT [None]
  - WOUND DRAINAGE [None]
